FAERS Safety Report 20181019 (Version 2)
Quarter: 2021Q4

REPORT INFORMATION
  Report Type: Spontaneous
  Country: US (occurrence: US)
  Receive Date: 20211214
  Receipt Date: 20211223
  Transmission Date: 20220304
  Serious: Yes (Other)
  Sender: FDA-Public Use
  Company Number: US-PFIZER INC-202101767900

PATIENT
  Age: 68 Year
  Sex: Female
  Weight: 72.57 kg

DRUGS (1)
  1. CHANTIX [Suspect]
     Active Substance: VARENICLINE TARTRATE
     Indication: Smoking cessation therapy
     Dosage: UNKNOWN; FIRST DIFFERENT COLOR WAS FINE WHEN SHE STARTED THE SECOND COLORED PILLS IS WHEN SHE STARTE
     Dates: start: 202111, end: 202112

REACTIONS (4)
  - Angiopathy [Unknown]
  - Vomiting [Recovered/Resolved]
  - Recalled product administered [Recovered/Resolved]
  - Product physical issue [Unknown]

NARRATIVE: CASE EVENT DATE: 20211101
